FAERS Safety Report 9238452 (Version 2)
Quarter: 2013Q2

REPORT INFORMATION
  Report Type: Spontaneous
  Country: US (occurrence: US)
  Receive Date: 20130418
  Receipt Date: 20130531
  Transmission Date: 20140414
  Serious: Yes (Hospitalization)
  Sender: FDA-Public Use
  Company Number: US-BRISTOL-MYERS SQUIBB COMPANY-18770669

PATIENT
  Sex: Female

DRUGS (1)
  1. YERVOY [Suspect]
     Route: 041

REACTIONS (2)
  - Cellulitis [Unknown]
  - Diarrhoea infectious [Unknown]
